FAERS Safety Report 9027848 (Version 1)
Quarter: 2013Q1

REPORT INFORMATION
  Report Type: Spontaneous
  Country: US (occurrence: None)
  Receive Date: 20130115
  Receipt Date: 20130115
  Transmission Date: 20140127
  Serious: Yes (Hospitalization)
  Sender: FDA-Public Use
  Company Number: None

PATIENT
  Age: 44 Year
  Sex: Female
  Weight: 108.86 kg

DRUGS (1)
  1. AVELOX [Suspect]
     Indication: BRONCHITIS
     Dosage: ONE TABLET 400 MG ONE A DAY PO 1 PILL
     Route: 048
     Dates: start: 20130110, end: 20130110

REACTIONS (4)
  - Pruritus [None]
  - Erythema [None]
  - Urticaria [None]
  - Hypersensitivity [None]
